FAERS Safety Report 10538282 (Version 1)
Quarter: 2014Q4

REPORT INFORMATION
  Report Type: Spontaneous
  Country: DE (occurrence: DE)
  Receive Date: 20141023
  Receipt Date: 20141023
  Transmission Date: 20150529
  Serious: Yes (Congenital Anomaly, Other)
  Sender: FDA-Public Use
  Company Number: DE-NOVOPROD-426072

PATIENT
  Sex: Female
  Weight: .64 kg

DRUGS (4)
  1. ESTRIFAM [Suspect]
     Active Substance: ESTRADIOL
     Indication: OFF LABEL USE
  2. ESTRIOL [Concomitant]
     Active Substance: ESTRIOL
     Dosage: UNK
     Route: 064
  3. ESTRIFAM [Suspect]
     Active Substance: ESTRADIOL
     Indication: PROPHYLAXIS OF ABORTION
     Dosage: UNK
     Route: 064
  4. UTROGEST [Concomitant]
     Active Substance: PROGESTERONE
     Indication: PROPHYLAXIS OF ABORTION
     Dosage: UNK
     Route: 064

REACTIONS (5)
  - Premature baby [Unknown]
  - Foetal exposure during pregnancy [Recovered/Resolved]
  - Ovarian cyst [Unknown]
  - Enlarged clitoris [Not Recovered/Not Resolved]
  - Neonatal respiratory distress syndrome [Recovered/Resolved]

NARRATIVE: CASE EVENT DATE: 20130118
